FAERS Safety Report 24664380 (Version 1)
Quarter: 2024Q4

REPORT INFORMATION
  Report Type: Spontaneous
  Country: US (occurrence: US)
  Receive Date: 20241126
  Receipt Date: 20241126
  Transmission Date: 20250115
  Serious: No
  Sender: BRISTOL-MYERS SQUIBB COMPANY
  Company Number: US-BRISTOL-MYERS SQUIBB COMPANY-2024-182800

PATIENT
  Age: 85 Year
  Sex: Female
  Weight: 53.51 kg

DRUGS (3)
  1. ELIQUIS [Suspect]
     Active Substance: APIXABAN
     Indication: Product used for unknown indication
  2. BRUKINSA [Suspect]
     Active Substance: ZANUBRUTINIB
     Indication: Chronic lymphocytic leukaemia
     Dosage: BID
     Route: 048
     Dates: start: 20221114
  3. BRUKINSA [Suspect]
     Active Substance: ZANUBRUTINIB
     Route: 048
     Dates: start: 20221114

REACTIONS (7)
  - Abdominal discomfort [Recovering/Resolving]
  - Epistaxis [Unknown]
  - Dizziness postural [Recovering/Resolving]
  - Urinary tract infection [Recovering/Resolving]
  - White blood cell count increased [Recovering/Resolving]
  - Vascular rupture [Unknown]
  - Fatigue [Unknown]

NARRATIVE: CASE EVENT DATE: 20221114
